FAERS Safety Report 13692752 (Version 1)
Quarter: 2017Q2

REPORT INFORMATION
  Report Type: Spontaneous
  Country: US (occurrence: US)
  Receive Date: 20170627
  Receipt Date: 20170627
  Transmission Date: 20170830
  Serious: Yes (Hospitalization)
  Sender: FDA-Public Use
  Company Number: US-ROCHE-1955949

PATIENT
  Sex: Female
  Weight: 78.09 kg

DRUGS (26)
  1. NITROGLYCERIN. [Concomitant]
     Active Substance: NITROGLYCERIN
  2. BUDESONIDE. [Concomitant]
     Active Substance: BUDESONIDE
  3. COMBIVENT [Concomitant]
     Active Substance: ALBUTEROL SULFATE\IPRATROPIUM BROMIDE
  4. XOLAIR [Suspect]
     Active Substance: OMALIZUMAB
     Indication: ASTHMA
     Route: 058
     Dates: start: 20170606
  5. IPRATROPIUM [Concomitant]
     Active Substance: IPRATROPIUM
     Route: 055
  6. TRAZODONE [Concomitant]
     Active Substance: TRAZODONE HYDROCHLORIDE
  7. AZITHROMYCIN ANHYDROUS. [Concomitant]
     Active Substance: AZITHROMYCIN ANHYDROUS
  8. SPIRIVA [Concomitant]
     Active Substance: TIOTROPIUM BROMIDE MONOHYDRATE
  9. ATORVASTATIN [Concomitant]
     Active Substance: ATORVASTATIN
  10. TIOTROPIUM [Concomitant]
     Active Substance: TIOTROPIUM
  11. CETIRIZINE [Concomitant]
     Active Substance: CETIRIZINE HYDROCHLORIDE
  12. OMEPRAZOLE. [Concomitant]
     Active Substance: OMEPRAZOLE
  13. SERTRALINE [Concomitant]
     Active Substance: SERTRALINE HYDROCHLORIDE
  14. ISOSORBIDE MONONITRATE. [Concomitant]
     Active Substance: ISOSORBIDE MONONITRATE
  15. TERAZOSIN [Concomitant]
     Active Substance: TERAZOSIN\TERAZOSIN HYDROCHLORIDE
  16. XOLAIR [Suspect]
     Active Substance: OMALIZUMAB
     Indication: HYPERSENSITIVITY
  17. LEVOTHYROXINE. [Concomitant]
     Active Substance: LEVOTHYROXINE
  18. MONTELUKAST [Concomitant]
     Active Substance: MONTELUKAST SODIUM
  19. CLONIDINE. [Concomitant]
     Active Substance: CLONIDINE
  20. CLOTRIMAZOLE. [Concomitant]
     Active Substance: CLOTRIMAZOLE
  21. METFORMIN [Concomitant]
     Active Substance: METFORMIN HYDROCHLORIDE
     Route: 065
  22. PREDNISONE. [Concomitant]
     Active Substance: PREDNISONE
  23. ASPIRIN. [Concomitant]
     Active Substance: ASPIRIN
  24. DALIRESP [Concomitant]
     Active Substance: ROFLUMILAST
  25. DILTIAZEM. [Concomitant]
     Active Substance: DILTIAZEM
  26. GUANFACINE. [Concomitant]
     Active Substance: GUANFACINE

REACTIONS (1)
  - Chronic obstructive pulmonary disease [Unknown]
